FAERS Safety Report 12269315 (Version 6)
Quarter: 2017Q2

REPORT INFORMATION
  Report Type: Report from Study
  Country: None (occurrence: PR)
  Receive Date: 20160414
  Receipt Date: 20170421
  Transmission Date: 20170830
  Serious: Yes (Death, Hospitalization, Other)
  Sender: FDA-Public Use
  Company Number: PR-ABBVIE-16K-131-1575585-00

PATIENT
  Age: 62 Year
  Sex: Female
  Weight: 61.29 kg

DRUGS (7)
  1. CATAFLAM [Concomitant]
     Active Substance: DICLOFENAC POTASSIUM
     Indication: MUSCLE RELAXANT THERAPY
     Route: 048
     Dates: end: 20160225
  2. TRAMADOL. [Concomitant]
     Active Substance: TRAMADOL
     Indication: PAIN
     Route: 048
  3. HUMIRA [Suspect]
     Active Substance: ADALIMUMAB
     Indication: RHEUMATOID ARTHRITIS
     Route: 058
     Dates: start: 2010, end: 201602
  4. METHOTREXATE. [Concomitant]
     Active Substance: METHOTREXATE
     Indication: RHEUMATOID ARTHRITIS
     Route: 048
     Dates: start: 2009, end: 20160225
  5. TRAMADOL. [Concomitant]
     Active Substance: TRAMADOL
     Indication: RHEUMATOID ARTHRITIS
     Route: 048
     Dates: end: 20160225
  6. FOLIC ACID. [Concomitant]
     Active Substance: FOLIC ACID
     Indication: ARTHRITIS
     Route: 048
  7. CATAFLAM [Concomitant]
     Active Substance: DICLOFENAC POTASSIUM
     Indication: PAIN

REACTIONS (21)
  - Anaemia [Recovered/Resolved]
  - Renal failure [Recovered/Resolved]
  - Pulmonary tuberculosis [Fatal]
  - Sepsis [Fatal]
  - Myocardial infarction [Fatal]
  - Pneumonitis [Not Recovered/Not Resolved]
  - Cerebral infarction [Recovered/Resolved with Sequelae]
  - Diarrhoea [Unknown]
  - Respiratory failure [Fatal]
  - Hypothermia [Recovered/Resolved]
  - Haematochezia [Recovered/Resolved]
  - Toxic shock syndrome [Recovering/Resolving]
  - Gastric ulcer [Unknown]
  - Hyperammonaemia [Not Recovered/Not Resolved]
  - Gastrointestinal haemorrhage [Fatal]
  - Renal impairment [Recovered/Resolved]
  - Immunodeficiency [Not Recovered/Not Resolved]
  - Pancreatitis [Unknown]
  - Weight decreased [Recovering/Resolving]
  - Asthenia [Unknown]
  - Metabolic encephalopathy [Not Recovered/Not Resolved]

NARRATIVE: CASE EVENT DATE: 2016
